FAERS Safety Report 7102805-5 (Version None)
Quarter: 2010Q4

REPORT INFORMATION
  Report Type: 
  Country: None (occurrence: None)
  Receive Date: 20101115
  Receipt Date: 20090707
  Transmission Date: 20110411
  Serious: No
  Sender: FDA-Public Use
  Company Number: US-KINGPHARMUSA00001-K200900807

PATIENT
  Age: 28 Year
  Sex: Female
  Weight: 58.957 kg

DRUGS (3)
  1. CYTOMEL [Suspect]
     Indication: THYROXINE DECREASED
     Dosage: UNK
     Route: 048
     Dates: start: 20090601, end: 20090702
  2. LEVOTHYROXINE SODIUM [Concomitant]
     Dosage: UNK
  3. VALTREX [Concomitant]
     Indication: ORAL HERPES
     Dosage: UNK

REACTIONS (9)
  - DIZZINESS [None]
  - DYSPNOEA [None]
  - ERYTHEMA [None]
  - GAIT DISTURBANCE [None]
  - HYPERSENSITIVITY [None]
  - JOINT WARMTH [None]
  - OEDEMA PERIPHERAL [None]
  - PARAESTHESIA [None]
  - TACHYCARDIA [None]
